FAERS Safety Report 8172460-4 (Version None)
Quarter: 2012Q1

REPORT INFORMATION
  Report Type: 
  Country: None (occurrence: None)
  Receive Date: 20120227
  Receipt Date: 20120227
  Transmission Date: 20120608
  Serious: No
  Sender: FDA-Public Use
  Company Number: None

PATIENT
  Sex: Female
  Weight: 63 kg

DRUGS (2)
  1. TAXOL [Suspect]
     Dosage: 297 MG
     Dates: end: 20120217
  2. CARBOPLATIN [Suspect]
     Dosage: 530 MG
     Dates: end: 20120217

REACTIONS (3)
  - NAUSEA [None]
  - PULMONARY EMBOLISM [None]
  - BUNDLE BRANCH BLOCK LEFT [None]
